FAERS Safety Report 9024228 (Version 4)
Quarter: 2014Q3

REPORT INFORMATION
  Report Type: Spontaneous
  Country: BE (occurrence: BE)
  Receive Date: 20130122
  Receipt Date: 20140916
  Transmission Date: 20150326
  Serious: Yes (Hospitalization, Other)
  Sender: FDA-Public Use
  Company Number: BE-AMGEN-BELSP2013002753

PATIENT
  Age: 82 Year
  Sex: Female

DRUGS (3)
  1. PROLIA [Suspect]
     Active Substance: DENOSUMAB
     Indication: OSTEOPOROSIS POSTMENOPAUSAL
     Dosage: UNK
     Route: 065
     Dates: start: 20120718, end: 2013
  2. CALCIUM [Concomitant]
     Active Substance: CALCIUM
     Dosage: UNK
     Dates: end: 2013
  3. VITAMIN D                          /00107901/ [Concomitant]
     Active Substance: ERGOCALCIFEROL

REACTIONS (16)
  - Femoral neck fracture [Unknown]
  - Investigation [Unknown]
  - Pain in extremity [Not Recovered/Not Resolved]
  - Loose tooth [Unknown]
  - Feeling abnormal [Unknown]
  - Back pain [Not Recovered/Not Resolved]
  - Gingival inflammation [Unknown]
  - Hip fracture [Unknown]
  - Pain [Unknown]
  - Acne [Not Recovered/Not Resolved]
  - Peripheral swelling [Unknown]
  - Tooth fracture [Unknown]
  - Vision blurred [Unknown]
  - Gait disturbance [Unknown]
  - Fall [Unknown]
  - Pulpitis dental [Unknown]

NARRATIVE: CASE EVENT DATE: 2012
